FAERS Safety Report 4667578-4 (Version None)
Quarter: 2005Q2

REPORT INFORMATION
  Report Type: 
  Country: None (occurrence: None)
  Receive Date: 20050520
  Receipt Date: 20050224
  Transmission Date: 20051028
  Serious: Yes (Hospitalization, Other)
  Sender: FDA-Public Use
  Company Number: PHEH2005US02471

PATIENT
  Sex: Female

DRUGS (1)
  1. AREDIA [Suspect]
     Indication: METASTASES TO BONE

REACTIONS (5)
  - BACTERIAL INFECTION [None]
  - BONE DISORDER [None]
  - FRACTURE [None]
  - OSTEOMYELITIS ACUTE [None]
  - WOUND DEBRIDEMENT [None]
